FAERS Safety Report 15748024 (Version 1)
Quarter: 2018Q4

REPORT INFORMATION
  Report Type: Spontaneous
  Country: DE (occurrence: DE)
  Receive Date: 20181221
  Receipt Date: 20181221
  Transmission Date: 20190205
  Serious: Yes (Life-Threatening, Other)
  Sender: FDA-Public Use
  Company Number: DE-SUN PHARMACEUTICAL INDUSTRIES LTD-2018RR-194285

PATIENT
  Age: 83 Year
  Sex: Male
  Weight: 80 kg

DRUGS (3)
  1. ASS 100 [Concomitant]
     Active Substance: ASPIRIN
     Indication: PRODUCT USED FOR UNKNOWN INDICATION
     Route: 065
  2. MIRTAZAPIN [Suspect]
     Active Substance: MIRTAZAPINE
     Indication: DEPRESSION
     Dosage: 15 MG 1 X T?GLICH
     Route: 048
     Dates: start: 20180901
  3. MARCUMAR [Concomitant]
     Active Substance: PHENPROCOUMON
     Indication: AORTIC VALVE REPLACEMENT
     Dosage: MARCUMAR MIT INR 1,5 ()
     Route: 065

REACTIONS (1)
  - Bronchial haemorrhage [Not Recovered/Not Resolved]

NARRATIVE: CASE EVENT DATE: 20181128
